FAERS Safety Report 23556274 (Version 1)
Quarter: 2024Q1

REPORT INFORMATION
  Report Type: Spontaneous
  Country: EG (occurrence: EG)
  Receive Date: 20240223
  Receipt Date: 20240223
  Transmission Date: 20240410
  Serious: Yes (Life-Threatening, Other)
  Sender: FDA-Public Use
  Company Number: EG-NOVOPROD-1176669

PATIENT
  Sex: Male

DRUGS (1)
  1. ACTRAPID [Suspect]
     Active Substance: INSULIN HUMAN
     Indication: Diabetes mellitus
     Dosage: 10 IU, TID(10 U/ BEFORE BREAKFAST ,10 U BEFORE LUNCH AND 10 U/ BEFORE DINNER)
     Route: 058

REACTIONS (1)
  - Diabetic hyperglycaemic coma [Unknown]
